FAERS Safety Report 24358743 (Version 7)
Quarter: 2025Q2

REPORT INFORMATION
  Report Type: Spontaneous
  Country: US (occurrence: US)
  Receive Date: 20240924
  Receipt Date: 20250424
  Transmission Date: 20250717
  Serious: Yes (Other)
  Sender: PFIZER
  Company Number: US-PFIZER INC-202400259241

PATIENT
  Age: 64 Year
  Sex: Female
  Weight: 60.317 kg

DRUGS (8)
  1. IBRANCE [Suspect]
     Active Substance: PALBOCICLIB
     Indication: Breast cancer metastatic
  2. IBRANCE [Suspect]
     Active Substance: PALBOCICLIB
     Route: 048
     Dates: start: 20181127
  3. IBRANCE [Suspect]
     Active Substance: PALBOCICLIB
     Dates: start: 20181127
  4. COVID-19 VACCINE [Concomitant]
     Indication: Immunisation
     Dates: start: 202302, end: 202302
  5. GEMFIBROZIL [Concomitant]
     Active Substance: GEMFIBROZIL
     Indication: Blood cholesterol abnormal
     Dosage: UNK, 1X/DAY
  6. POTASSIUM [Concomitant]
     Active Substance: POTASSIUM
     Dosage: 20 MEQ, 1X/DAY
  7. ROSUVASTATIN CALCIUM [Concomitant]
     Active Substance: ROSUVASTATIN CALCIUM
     Indication: Blood cholesterol abnormal
     Dosage: 40 MG, 1X/DAY
  8. XGEVA [Concomitant]
     Active Substance: DENOSUMAB

REACTIONS (7)
  - Cyst rupture [Unknown]
  - Sciatica [Recovering/Resolving]
  - Poor quality sleep [Recovering/Resolving]
  - Back pain [Recovered/Resolved]
  - Intervertebral disc protrusion [Unknown]
  - Illness [Unknown]
  - Tooth disorder [Not Recovered/Not Resolved]

NARRATIVE: CASE EVENT DATE: 20230201
